FAERS Safety Report 5684700-1 (Version None)
Quarter: 2008Q1

REPORT INFORMATION
  Report Type: 
  Country: None (occurrence: None)
  Receive Date: 20080328
  Receipt Date: 20070710
  Transmission Date: 20080703
  Serious: Yes (Hospitalization)
  Sender: FDA-Public Use
  Company Number: US-BRISTOL-MYERS SQUIBB COMPANY-13840483

PATIENT
  Age: 70 Year
  Sex: Male
  Weight: 94 kg

DRUGS (16)
  1. ERBITUX [Suspect]
     Route: 042
     Dates: start: 20070709, end: 20070709
  2. PLAVIX [Concomitant]
  3. GLYBURIDE [Concomitant]
  4. ATROVENT [Concomitant]
  5. ATIVAN [Concomitant]
  6. CYMBALTA [Concomitant]
  7. NEXIUM [Concomitant]
  8. VICODIN [Concomitant]
  9. NITROGLYCERIN [Concomitant]
  10. ALTACE [Concomitant]
  11. DIGOXIN [Concomitant]
  12. SULAR [Concomitant]
  13. SOTALOL [Concomitant]
  14. TYLENOL (CAPLET) [Concomitant]
  15. ASPIRIN [Concomitant]
  16. BENADRYL [Concomitant]

REACTIONS (7)
  - COMA [None]
  - HYPOTENSION [None]
  - HYPOXIA [None]
  - INFUSION RELATED REACTION [None]
  - RASH [None]
  - RASH GENERALISED [None]
  - SWELLING FACE [None]
